FAERS Safety Report 6589796-0 (Version None)
Quarter: 2010Q1

REPORT INFORMATION
  Report Type: 
  Country: None (occurrence: None)
  Receive Date: 20100219
  Receipt Date: 20100209
  Transmission Date: 20100710
  Serious: Yes (Hospitalization)
  Sender: FDA-Public Use
  Company Number: NL-JNJFOC-20100205708

PATIENT
  Sex: Female

DRUGS (1)
  1. REMICADE [Suspect]
     Indication: CROHN'S DISEASE
     Route: 042

REACTIONS (7)
  - ARTHRALGIA [None]
  - DYSPNOEA [None]
  - ERYTHEMA INFECTIOSUM [None]
  - HYPERSENSITIVITY [None]
  - INFUSION RELATED REACTION [None]
  - PALPITATIONS [None]
  - VERTIGO [None]
